FAERS Safety Report 9429109 (Version 1)
Quarter: 2013Q3

REPORT INFORMATION
  Report Type: Spontaneous
  Country: US (occurrence: US)
  Receive Date: 20130730
  Receipt Date: 20130730
  Transmission Date: 20140515
  Serious: Yes (Hospitalization, Other)
  Sender: FDA-Public Use
  Company Number: US-JNJFOC-20130712507

PATIENT
  Age: 60 Year
  Sex: Male
  Weight: 65.77 kg

DRUGS (7)
  1. ELMIRON [Suspect]
     Indication: CYSTITIS INTERSTITIAL
     Route: 048
     Dates: end: 201307
  2. ELMIRON [Suspect]
     Indication: CYSTITIS INTERSTITIAL
     Route: 048
     Dates: start: 201307
  3. SIMVASTATIN [Concomitant]
     Indication: BLOOD CHOLESTEROL
     Route: 048
  4. PANTOPRAZOLE [Concomitant]
     Indication: GASTROINTESTINAL DISORDER
     Route: 048
  5. ASPIRIN [Concomitant]
     Indication: PROPHYLAXIS
     Route: 048
  6. CALCIUM [Concomitant]
     Indication: BONE LOSS
     Route: 048
  7. BIOTIN [Concomitant]
     Indication: SUPPORTIVE CARE
     Route: 048

REACTIONS (7)
  - Ovarian cancer [Recovered/Resolved]
  - Extramammary Paget^s disease [Recovered/Resolved]
  - Thyroid mass [Recovered/Resolved]
  - Discomfort [Not Recovered/Not Resolved]
  - Bladder disorder [Recovered/Resolved]
  - Alopecia [Not Recovered/Not Resolved]
  - Drug prescribing error [Unknown]
